FAERS Safety Report 7906329-4 (Version None)
Quarter: 2011Q4

REPORT INFORMATION
  Report Type: 
  Country: None (occurrence: None)
  Receive Date: 20111110
  Receipt Date: 20111024
  Transmission Date: 20120403
  Serious: Yes (Other)
  Sender: FDA-Public Use
  Company Number: CA-NAPPMUNDI-CAN-2011-0002322

PATIENT
  Sex: Female

DRUGS (1)
  1. BUTRANS [Suspect]
     Indication: OSTEOARTHRITIS
     Dosage: 5 MCG, Q1H
     Route: 062
     Dates: start: 20101001, end: 20111001

REACTIONS (10)
  - DIZZINESS [None]
  - APPLICATION SITE RASH [None]
  - HEART RATE [None]
  - APPLICATION SITE DISCOLOURATION [None]
  - OVERDOSE [None]
  - APPLICATION SITE PRURITUS [None]
  - WRONG TECHNIQUE IN DRUG USAGE PROCESS [None]
  - NAUSEA [None]
  - VOMITING [None]
  - APPLICATION SITE IRRITATION [None]
